FAERS Safety Report 4388544-2 (Version None)
Quarter: 2004Q2

REPORT INFORMATION
  Report Type: 
  Country: None (occurrence: None)
  Receive Date: 20040625
  Receipt Date: 20040617
  Transmission Date: 20050107
  Serious: Yes (Hospitalization)
  Sender: FDA-Public Use
  Company Number: 2004PK01065

PATIENT
  Age: 76 Year
  Sex: Female

DRUGS (10)
  1. IRESSA [Suspect]
     Indication: NON-SMALL CELL LUNG CANCER
     Dosage: 250 MG DAILY PO
     Route: 048
     Dates: start: 20031025, end: 20040515
  2. IRESSA [Suspect]
     Indication: NON-SMALL CELL LUNG CANCER
     Dosage: 250 MG DAILY PO
     Route: 048
     Dates: start: 20040611
  3. FUROSEMIDE [Concomitant]
  4. TAVEGIL [Concomitant]
  5. SOVENTOL [Concomitant]
  6. ENALAPRIL MALEATE [Concomitant]
  7. XIMOVAN [Concomitant]
  8. LAXOBERAL [Concomitant]
  9. LISINOPRIL [Concomitant]
  10. METFORMIN [Concomitant]

REACTIONS (2)
  - ABDOMINAL PAIN [None]
  - DIARRHOEA [None]
